FAERS Safety Report 20894926 (Version 2)
Quarter: 2022Q2

REPORT INFORMATION
  Report Type: Report from Study
  Country: JP (occurrence: JP)
  Receive Date: 20220531
  Receipt Date: 20220606
  Transmission Date: 20220721
  Serious: Yes (Hospitalization)
  Sender: FDA-Public Use
  Company Number: JP-CHUGAI-2022019294

PATIENT
  Age: 51 Year
  Sex: Female
  Weight: 51.4 kg

DRUGS (25)
  1. ATEZOLIZUMAB [Suspect]
     Active Substance: ATEZOLIZUMAB
     Indication: Hormone receptor positive breast cancer
     Dosage: 840 MILLIGRAM, DAY1, 15
     Route: 042
     Dates: start: 20210929
  2. ATEZOLIZUMAB [Suspect]
     Active Substance: ATEZOLIZUMAB
     Indication: HER2 negative breast cancer
  3. PACLITAXEL [Suspect]
     Active Substance: PACLITAXEL
     Indication: Hormone receptor positive breast cancer
     Dosage: 90 MILLIGRAM/SQ. METER, DAY1, 8, 15
     Route: 042
  4. PACLITAXEL [Suspect]
     Active Substance: PACLITAXEL
     Indication: HER2 negative breast cancer
  5. TAPENTADOL HYDROCHLORIDE [Suspect]
     Active Substance: TAPENTADOL HYDROCHLORIDE
     Indication: Tumour pain
     Dosage: 2 DOSAGE FORM, BID
     Route: 048
  6. TAPENTADOL HYDROCHLORIDE [Suspect]
     Active Substance: TAPENTADOL HYDROCHLORIDE
     Dosage: 1 DOSAGE FORM, BID
     Route: 048
  7. BEVACIZUMAB [Concomitant]
     Active Substance: BEVACIZUMAB
     Indication: Breast cancer recurrent
     Dosage: 10 MILLIGRAM/KILOGRAM, DAY1, 15
     Route: 042
     Dates: start: 20210929
  8. BEVACIZUMAB [Concomitant]
     Active Substance: BEVACIZUMAB
     Indication: HER2 negative breast cancer
  9. CALCIUM CARBONATE\CHOLECALCIFEROL\MAGNESIUM CARBONATE [Concomitant]
     Active Substance: CALCIUM CARBONATE\CHOLECALCIFEROL\MAGNESIUM CARBONATE
     Indication: Metastases to bone
     Dosage: 2 DOSAGE FORM, QD
     Route: 048
  10. VOLTAREN [Concomitant]
     Active Substance: DICLOFENAC SODIUM
     Indication: Tumour pain
     Dosage: UNK UNK, PRN
     Route: 048
  11. VOLTAREN [Concomitant]
     Active Substance: DICLOFENAC SODIUM
     Indication: Arthralgia
  12. VOLTAREN [Concomitant]
     Active Substance: DICLOFENAC SODIUM
     Indication: Myalgia
  13. CALONAL [Concomitant]
     Active Substance: ACETAMINOPHEN
     Indication: Tumour pain
     Dosage: UNK UNK, PRN
     Route: 048
  14. LOXOPROFEN [Concomitant]
     Active Substance: LOXOPROFEN
     Indication: Tumour pain
     Dosage: UNK, PRN
     Route: 048
  15. LOXOPROFEN [Concomitant]
     Active Substance: LOXOPROFEN
     Indication: Arthralgia
  16. LOXOPROFEN [Concomitant]
     Active Substance: LOXOPROFEN
     Indication: Myalgia
  17. REBAMIPIDE [Concomitant]
     Active Substance: REBAMIPIDE
     Indication: Gastritis prophylaxis
     Dosage: UNK, PRN
     Route: 048
  18. URSODIOL [Concomitant]
     Active Substance: URSODIOL
     Indication: Hepatic function abnormal
     Dosage: 200 MILLIGRAM, TID
     Route: 048
     Dates: start: 20211013
  19. AMLODIPINE [Concomitant]
     Active Substance: AMLODIPINE BESYLATE
     Indication: Hypertension
     Dosage: 1 DOSAGE FORM, QD
     Route: 048
     Dates: start: 20211228
  20. LOPERAMIDE HYDROCHLORIDE [Concomitant]
     Active Substance: LOPERAMIDE HYDROCHLORIDE
     Indication: Diarrhoea
     Dosage: UNK UNK, PRN
     Route: 048
     Dates: start: 20220202, end: 20220522
  21. AZULENE [SODIUM GUALENATE HYDRATE] [Concomitant]
     Indication: Irrigation therapy
     Dosage: UNK UNK, PRN
     Dates: start: 20211006
  22. LOXOPROFEN SODIUM [Concomitant]
     Active Substance: LOXOPROFEN SODIUM
     Indication: Arthralgia
     Dosage: UNK UNK, PRN
     Route: 061
     Dates: start: 20220316
  23. LOXOPROFEN SODIUM [Concomitant]
     Active Substance: LOXOPROFEN SODIUM
     Indication: Myalgia
  24. DIQUAFOSOL TETRASODIUM [Concomitant]
     Active Substance: DIQUAFOSOL TETRASODIUM
     Indication: Dry eye
     Dosage: UNK UNK, PRN
     Route: 047
     Dates: start: 20220427
  25. DEXAN VG [Concomitant]
     Indication: Stomatitis
     Dosage: UNK UNK, PRN
     Route: 061
     Dates: start: 20220511

REACTIONS (1)
  - Constipation [Recovering/Resolving]

NARRATIVE: CASE EVENT DATE: 20220512
